FAERS Safety Report 7716230-7 (Version None)
Quarter: 2011Q3

REPORT INFORMATION
  Report Type: 
  Country: None (occurrence: None)
  Receive Date: 20110829
  Receipt Date: 20110819
  Transmission Date: 20111222
  Serious: Yes (Hospitalization, Other)
  Sender: FDA-Public Use
  Company Number: US-ASTRAZENECA-2011SE49812

PATIENT
  Sex: Male

DRUGS (3)
  1. SEROQUEL XR [Suspect]
     Indication: INSOMNIA
     Route: 048
  2. EFFEXOR XR [Concomitant]
     Indication: BIPOLAR DISORDER
  3. TOPAMAX [Concomitant]
     Indication: WEIGHT INCREASED

REACTIONS (9)
  - MENTAL IMPAIRMENT [None]
  - OFF LABEL USE [None]
  - THERAPEUTIC RESPONSE UNEXPECTED [None]
  - INSOMNIA [None]
  - HOMICIDAL IDEATION [None]
  - WEIGHT INCREASED [None]
  - DRUG DOSE OMISSION [None]
  - SUICIDAL BEHAVIOUR [None]
  - DEPRESSION [None]
